FAERS Safety Report 9421298 (Version 1)
Quarter: 2013Q3

REPORT INFORMATION
  Report Type: Spontaneous
  Country: US (occurrence: US)
  Receive Date: 20130716
  Receipt Date: 20130716
  Transmission Date: 20140515
  Serious: Yes (Other)
  Sender: FDA-Public Use
  Company Number: 2013036938

PATIENT
  Sex: Female
  Weight: 86.18 kg

DRUGS (29)
  1. HIZENTRA (IMMUNOGLOBULIN HUMAN NORMAL) [Suspect]
     Indication: IMMUNODEFICIENCY COMMON VARIABLE
     Dosage: 18 G, 1X/WEEK, 6 SITES OVER 2-3 HOURS
     Route: 058
  2. DIPHENHYDRAMINE (DIPHENHYDRAMINE) [Concomitant]
  3. EPI-PEN (EPINEPHRINE HYDROCHLORIDE) [Concomitant]
  4. CELEXA (CITALOPRAM HYDROBROMIDE) [Concomitant]
  5. SKELAXIN (METAXALONE) [Concomitant]
  6. AVELOX (MOXIFLOXACIN HYYDROCHLORIDE) [Concomitant]
  7. SIMVASTATIN (SIMVASTATIN) [Concomitant]
  8. NEURONTIN (GABAPENTIN) [Concomitant]
  9. METFORMIN HCL (METFORMIN HYDROCHLORIDE) [Concomitant]
  10. FISH OIL (FISH OIL) [Concomitant]
  11. GABAPENTIN (GABAPENTIN) [Concomitant]
  12. AMOXICILLIN (AMOXICILLIN) [Concomitant]
  13. ONGLYZA (ALL OTHER THERAPEUTIC PRODUCTS) [Concomitant]
  14. SINGULAIR [Concomitant]
  15. PULMICORT (BUDESONIDE) [Concomitant]
  16. XOPENEX HFA (LEVOSALBUTAMOL) [Concomitant]
  17. HYDROCHLOROTHIAZIDE (HYDROCHLOROTHIAZIDE) [Concomitant]
  18. FOSAMAX (ALENDRONATE SODIUM) [Concomitant]
  19. PANTOPRAZOLE SODIUM DR (PANTOPRAZOLE SODIUM) [Concomitant]
  20. OS-CAL 500+D (LEKOVIT CA) [Concomitant]
  21. BENAZEPRIL HCL (LOTREL) [Concomitant]
  22. FLONASE (FLUTICASONE PROPIONATE) [Concomitant]
  23. SYMBICORT [Concomitant]
  24. TYLENOL 8 HOUR (PARACETAMOL) [Concomitant]
  25. CLARITIN (LORATADINE) [Concomitant]
  26. ALBUTEROL SULFATE (SALBUTAMOL SULFATE) [Concomitant]
  27. ASPIRIN (ACETYLSALICYLIC ACID) [Concomitant]
  28. COMPLETE MULTIVITAMIN (DAILY MULTIVITAMIN) [Concomitant]
  29. RANITIDINE (RANITIDINE) [Concomitant]

REACTIONS (1)
  - Candida infection [None]
